FAERS Safety Report 9449396 (Version 4)
Quarter: 2013Q4

REPORT INFORMATION
  Report Type: Spontaneous
  Country: DE (occurrence: DE)
  Receive Date: 20130809
  Receipt Date: 20131108
  Transmission Date: 20140711
  Serious: Yes (Hospitalization)
  Sender: FDA-Public Use
  Company Number: DE-AMGEN-DEUSP2013054942

PATIENT
  Age: 66 Year
  Sex: Female

DRUGS (15)
  1. PEGFILGRASTIM [Suspect]
     Indication: PRODUCT USED FOR UNKNOWN INDICATION
     Dosage: 6 MG, DAILY
     Route: 065
     Dates: start: 20130722, end: 20130722
  2. PEGFILGRASTIM [Suspect]
     Dosage: UNK
     Route: 065
     Dates: start: 20130723, end: 20130723
  3. DOCETAXEL [Suspect]
     Indication: PRODUCT USED FOR UNKNOWN INDICATION
     Dosage: UNK UNK, 1 DAY
     Route: 065
     Dates: start: 20130701, end: 20130701
  4. TRASTUZUMAB [Concomitant]
     Indication: BREAST CANCER
     Dosage: 600 MG, 1 IN 3 WK
     Route: 058
     Dates: start: 20130701
  5. FORTECORTIN                        /00016002/ [Concomitant]
     Dosage: 8 MG, 1 DAY
     Dates: start: 20130722, end: 20130722
  6. KEVATRIL [Concomitant]
     Dosage: 1 MG, 1 DAY
     Dates: start: 20130722, end: 20130722
  7. TAVEGIL                            /00137202/ [Concomitant]
     Dosage: 2 MG, 1 DAY
     Dates: start: 20130722, end: 20130722
  8. ZANTIC [Concomitant]
     Dosage: 50 MG, 1 DAY
     Dates: start: 20130722, end: 20130722
  9. AMLODIPIN                          /00972401/ [Concomitant]
     Dosage: 10 MG, UNK
     Dates: start: 201205
  10. AMITRIPTYLINE                      /00002202/ [Concomitant]
     Dosage: 25 MG, UNK
     Dates: start: 201209
  11. PARACETAMOL [Concomitant]
     Dosage: 500 MG, UNK
     Dates: start: 20130429
  12. MORONAL [Concomitant]
     Dosage: UNK UNK, THREE TIMES A DAY/PPT (3 IN 1 D)
     Dates: start: 20130521
  13. CIPROBAY                           /00697202/ [Concomitant]
     Dosage: 800 MG, UNK
     Dates: start: 20130706, end: 20130712
  14. CIPROBAY                           /00697202/ [Concomitant]
     Dosage: UNK
     Dates: start: 20130713, end: 20130716
  15. FILGRASTIM [Concomitant]
     Dosage: UNK

REACTIONS (1)
  - Pyrexia [Recovered/Resolved]
